FAERS Safety Report 6607158-4 (Version None)
Quarter: 2010Q1

REPORT INFORMATION
  Report Type: 
  Country: None (occurrence: None)
  Receive Date: 20100212
  Receipt Date: 20091022
  Transmission Date: 20100710
  Serious: No
  Sender: FDA-Public Use
  Company Number: 1000009645

PATIENT
  Age: 76 Year
  Sex: Female

DRUGS (7)
  1. SAVELLA [Suspect]
     Indication: NEUROPATHY PERIPHERAL
     Dosage: SEE IMAGE
     Route: 048
     Dates: start: 20090827, end: 20090901
  2. SAVELLA [Suspect]
     Indication: NEUROPATHY PERIPHERAL
     Dosage: SEE IMAGE
     Route: 048
     Dates: start: 20090902, end: 20090909
  3. SAVELLA [Suspect]
     Indication: NEUROPATHY PERIPHERAL
     Dosage: SEE IMAGE
     Route: 048
     Dates: start: 20090910, end: 20090921
  4. SAVELLA [Suspect]
     Indication: NEUROPATHY PERIPHERAL
     Dosage: SEE IMAGE
     Route: 048
     Dates: start: 20090922
  5. CRESTOR [Concomitant]
  6. CELEBREX [Concomitant]
  7. ATENOLOL AND CHLORTHALIDONE [Concomitant]

REACTIONS (1)
  - RASH [None]
